FAERS Safety Report 19256628 (Version 1)
Quarter: 2021Q2

REPORT INFORMATION
  Report Type: Spontaneous
  Country: US (occurrence: US)
  Receive Date: 20210513
  Receipt Date: 20210513
  Transmission Date: 20210717
  Serious: No
  Sender: FDA-Public Use
  Company Number: US-ELI_LILLY_AND_COMPANY-US202105003605

PATIENT
  Sex: Male

DRUGS (4)
  1. BAMLANIVIMAB. [Suspect]
     Active Substance: BAMLANIVIMAB
     Indication: COVID-19
     Dosage: UNK UNK, UNKNOWN
     Route: 065
     Dates: start: 20210505, end: 20210505
  2. DRAMAMINE [Concomitant]
     Active Substance: DIMENHYDRINATE
     Indication: DIZZINESS
     Dosage: UNK, UNKNOWN
     Route: 065
  3. LORAZEPAM. [Concomitant]
     Active Substance: LORAZEPAM
     Indication: PROPHYLAXIS
     Dosage: UNK, UNKNOWN
     Route: 065
  4. ETESEVIMAB. [Suspect]
     Active Substance: ETESEVIMAB
     Indication: COVID-19
     Dosage: UNK UNK, SINGLE
     Route: 065
     Dates: start: 20210505, end: 20210505

REACTIONS (3)
  - Urticaria [Recovering/Resolving]
  - Haematemesis [Recovered/Resolved]
  - Blood pressure increased [Recovering/Resolving]
